FAERS Safety Report 4589119-2 (Version None)
Quarter: 2005Q1

REPORT INFORMATION
  Report Type: 
  Country: None (occurrence: None)
  Receive Date: 20050125
  Receipt Date: 20040915
  Transmission Date: 20050727
  Serious: No
  Sender: FDA-Public Use
  Company Number: USA040361015

PATIENT
  Age: 59 Year
  Sex: Female

DRUGS (6)
  1. FORTEO [Suspect]
     Indication: OSTEOPOROSIS
     Dates: start: 20040212, end: 20040601
  2. DIGOXIN [Concomitant]
  3. VERAPAMIL [Concomitant]
  4. METOPROLOL TARTRATE [Concomitant]
  5. FOSAMAX [Concomitant]
  6. ACTONEL [Concomitant]

REACTIONS (7)
  - ASTHENIA [None]
  - FATIGUE [None]
  - FEELING ABNORMAL [None]
  - HEART RATE INCREASED [None]
  - MUSCLE SPASMS [None]
  - SOMNOLENCE [None]
  - TREMOR [None]
